FAERS Safety Report 7913722-2 (Version None)
Quarter: 2011Q4

REPORT INFORMATION
  Report Type: 
  Country: None (occurrence: None)
  Receive Date: 20111115
  Receipt Date: 20111106
  Transmission Date: 20120403
  Serious: Yes (Hospitalization, Other)
  Sender: FDA-Public Use
  Company Number: HR-JNJFOC-20111104666

PATIENT
  Age: 17 Year
  Sex: Male

DRUGS (19)
  1. RISPERIDONE [Suspect]
     Indication: MENTAL IMPAIRMENT
     Route: 065
     Dates: start: 20110101
  2. RISPERIDONE [Suspect]
     Route: 065
     Dates: start: 20110101
  3. ESCITALOPRAM [Concomitant]
     Route: 065
  4. RISPERIDONE [Suspect]
     Route: 065
     Dates: start: 20110101
  5. RISPERIDONE [Suspect]
     Indication: PSYCHOTIC DISORDER DUE TO A GENERAL MEDICAL CONDITION
     Route: 065
     Dates: start: 20110101
  6. DIAZEPAM [Concomitant]
     Route: 065
  7. PROMAZINE HYDROCHLORIDE [Concomitant]
     Route: 065
  8. RISPERIDONE [Suspect]
     Route: 065
     Dates: start: 20061001, end: 20110101
  9. RISPERIDONE [Suspect]
     Route: 065
     Dates: start: 20061001, end: 20110101
  10. ESCITALOPRAM [Concomitant]
     Route: 065
  11. ANXIOLYTIC [Concomitant]
     Route: 065
  12. RISPERIDONE [Suspect]
     Indication: PSYCHOTIC DISORDER
     Route: 065
     Dates: start: 20061001, end: 20110101
  13. RISPERIDONE [Suspect]
     Indication: PERSONALITY DISORDER
     Dosage: DOSING SCHEDULE 1-0-0.5 OF 2 MG TBL AND THEN 1-0-1MG
     Route: 048
     Dates: start: 20050601, end: 20061001
  14. RISPERIDONE [Suspect]
     Dosage: 1-0-1 MG SCHEDULE
     Route: 048
     Dates: start: 20061001, end: 20061001
  15. RISPERIDONE [Suspect]
     Indication: PERSONALITY DISORDER
     Route: 065
     Dates: start: 20061001, end: 20110101
  16. LAMOTRIGINE [Concomitant]
     Route: 065
  17. LAMOTRIGINE [Concomitant]
     Route: 065
  18. DIAZEPAM [Concomitant]
     Route: 065
  19. PROMAZINE HYDROCHLORIDE [Concomitant]
     Route: 065

REACTIONS (4)
  - ANXIETY [None]
  - DISTURBANCE IN SOCIAL BEHAVIOUR [None]
  - NEGATIVISM [None]
  - TREATMENT NONCOMPLIANCE [None]
